FAERS Safety Report 19755996 (Version 1)
Quarter: 2021Q3

REPORT INFORMATION
  Report Type: Report from Study
  Country: IE (occurrence: IE)
  Receive Date: 20210827
  Receipt Date: 20210827
  Transmission Date: 20211014
  Serious: Yes (Hospitalization)
  Sender: FDA-Public Use
  Company Number: IE-TAKEDA-IE202010515

PATIENT
  Age: 38 Year
  Sex: Female

DRUGS (3)
  1. CUVITRU [Suspect]
     Active Substance: HUMAN IMMUNOGLOBULIN G
     Indication: PRODUCT USED FOR UNKNOWN INDICATION
     Dosage: 12 GRAM, 1/WEEK
     Route: 058
     Dates: start: 20200312
  2. CITROMAX [Concomitant]
     Active Substance: CALCIUM CITRATE\CHOLECALCIFEROL\MAGNESIUM
     Dosage: 1 N/A, ALTERNATE DAYS
     Route: 050
  3. VENTOLIN [Concomitant]
     Active Substance: ALBUTEROL SULFATE
     Indication: PRODUCT USED FOR UNKNOWN INDICATION
     Dosage: 1 N/A PRN
     Route: 050

REACTIONS (3)
  - Hospitalisation [Recovering/Resolving]
  - Product colour issue [Unknown]
  - Malaise [Recovered/Resolved]

NARRATIVE: CASE EVENT DATE: 20210226
